FAERS Safety Report 9011114 (Version 1)
Quarter: 2013Q1

REPORT INFORMATION
  Report Type: Spontaneous
  Country: BR (occurrence: BR)
  Receive Date: 20130109
  Receipt Date: 20130109
  Transmission Date: 20140127
  Serious: Yes (Other)
  Sender: FDA-Public Use
  Company Number: PHHY2013BR001495

PATIENT
  Sex: Female

DRUGS (8)
  1. DIOVAN HCT [Suspect]
     Dosage: 1 DF 1 TABLET (VALSARTAN 160MG AND HYDROCHLOROTIAZIDE 25MG) DAILY
     Route: 048
  2. DIOVAN HCT [Suspect]
     Dosage: 2 DF 2 TABLETS (VALSARTAN 160MG AND HYDROCHLOROTIAZIDE 25MG) DAILY
     Route: 048
  3. GLICAMIN//GLIBENCLAMIDE [Concomitant]
     Indication: DIABETES MELLITUS
     Dosage: 3 DF DAILY
     Route: 048
  4. NIMESULIDE [Concomitant]
     Indication: BONE PAIN
     Dosage: 4 DF A DAY
     Route: 048
  5. PARACETAMOL [Concomitant]
     Indication: BONE PAIN
     Dosage: 4 DF DAILY
     Route: 048
  6. GLUCOSAMINE [Concomitant]
     Indication: BONE PAIN
     Dosage: 4 DF DAILY
     Route: 048
  7. CARISOPRODOL [Concomitant]
     Indication: BONE PAIN
     Dosage: 4 DF DAILY
     Route: 048
  8. SOMALGIN [Concomitant]
     Indication: COAGULATION TIME SHORTENED
     Dosage: 2 DF A DAY
     Route: 048

REACTIONS (2)
  - Diabetes mellitus [Not Recovered/Not Resolved]
  - Dengue fever [Recovered/Resolved]
